FAERS Safety Report 10248651 (Version 1)
Quarter: 2014Q2

REPORT INFORMATION
  Report Type: Spontaneous
  Country: US (occurrence: None)
  Receive Date: 20140617
  Receipt Date: 20140617
  Transmission Date: 20141212
  Serious: Yes (Hospitalization)
  Sender: FDA-Public Use
  Company Number: None

PATIENT
  Age: 71 Year
  Sex: Female
  Weight: 103 kg

DRUGS (11)
  1. NAFCILLIN [Suspect]
     Indication: OSTEOMYELITIS
     Dosage: 12 G RUN OVER 24 HRS INTRAVENOUS
     Route: 042
     Dates: start: 20140607, end: 20140611
  2. AUGMENTIN [Concomitant]
  3. SIMVASTATIN [Concomitant]
  4. CELECOXIB [Concomitant]
  5. DULOXETINE [Concomitant]
  6. ENALAPRIL [Concomitant]
  7. FESOTERODINE [Concomitant]
  8. AMOXICILLIN [Concomitant]
  9. ASPIRIN [Concomitant]
  10. OXACILLIN [Concomitant]
  11. ZOSTER VACCINE [Concomitant]

REACTIONS (5)
  - Lethargy [None]
  - Decreased appetite [None]
  - Constipation [None]
  - Renal failure acute [None]
  - Staphylococcus test positive [None]
